FAERS Safety Report 6145297-5 (Version None)
Quarter: 2009Q2

REPORT INFORMATION
  Report Type: 
  Country: None (occurrence: None)
  Receive Date: 20090406
  Receipt Date: 20090330
  Transmission Date: 20091009
  Serious: No
  Sender: FDA-Public Use
  Company Number: GB-ABBOTT-09P-167-0559488-00

PATIENT
  Sex: Female
  Weight: 70 kg

DRUGS (7)
  1. KLARICID [Suspect]
     Indication: LOWER RESPIRATORY TRACT INFECTION
     Route: 048
     Dates: start: 20090116, end: 20090118
  2. LOSARTAN POTASSIUM [Suspect]
     Indication: DRUG USE FOR UNKNOWN INDICATION
  3. AMOXICILLIN [Concomitant]
     Indication: DRUG USE FOR UNKNOWN INDICATION
  4. BENDROFLUMETHIAZIDE [Concomitant]
     Indication: DRUG USE FOR UNKNOWN INDICATION
  5. LEVOTHYROXINE SODIUM [Concomitant]
     Indication: DRUG USE FOR UNKNOWN INDICATION
  6. LEVOTHYROXINE SODIUM [Concomitant]
  7. HYDROXOCOBALAMIN [Concomitant]
     Indication: DRUG USE FOR UNKNOWN INDICATION
     Dosage: 1 ML AMPOULE

REACTIONS (7)
  - ADVERSE DRUG REACTION [None]
  - CHEILITIS [None]
  - HALLUCINATION [None]
  - LIP ULCERATION [None]
  - NIGHTMARE [None]
  - PNEUMONIA [None]
  - STOMATITIS [None]
